FAERS Safety Report 5919862-1 (Version None)
Quarter: 2008Q4

REPORT INFORMATION
  Report Type: 
  Country: None (occurrence: None)
  Receive Date: 20081015
  Receipt Date: 20081003
  Transmission Date: 20090506
  Serious: Yes (Hospitalization)
  Sender: FDA-Public Use
  Company Number: JP-PFIZER INC-2008085085

PATIENT
  Sex: Male
  Weight: 60 kg

DRUGS (8)
  1. REVATIO [Suspect]
     Route: 048
     Dates: start: 20080516, end: 20080526
  2. ASPIRIN [Concomitant]
     Route: 048
  3. LOSARTAN POTASSIUM [Concomitant]
     Route: 048
  4. FAMOTIDINE [Concomitant]
     Route: 048
  5. FLUITRAN [Concomitant]
     Route: 048
  6. LASIX [Concomitant]
     Route: 048
  7. ZYLORIC ^FAES^ [Concomitant]
     Route: 048
  8. SELBEX [Concomitant]
     Route: 048

REACTIONS (1)
  - LIVER DISORDER [None]
